FAERS Safety Report 21508860 (Version 2)
Quarter: 2022Q4

REPORT INFORMATION
  Report Type: Spontaneous
  Country: US (occurrence: None)
  Receive Date: 20221026
  Receipt Date: 20221102
  Transmission Date: 20230112
  Serious: Yes (Other)
  Sender: FDA-Public Use
  Company Number: 2022A350514

PATIENT
  Age: 7879 Day
  Sex: Male
  Weight: 70 kg

DRUGS (1)
  1. SYMBICORT [Suspect]
     Active Substance: BUDESONIDE\FORMOTEROL FUMARATE DIHYDRATE
     Indication: Pickwickian syndrome
     Dosage: SYMBICORT 80/4.5MCG 2 PUFFS TWICE A DAY
     Route: 055
     Dates: start: 20180518

REACTIONS (5)
  - Cerebral palsy [Unknown]
  - Condition aggravated [Unknown]
  - Device use issue [Unknown]
  - Product use issue [Unknown]
  - Device breakage [Unknown]

NARRATIVE: CASE EVENT DATE: 20180518
